FAERS Safety Report 14308533 (Version 9)
Quarter: 2021Q3

REPORT INFORMATION
  Report Type: Spontaneous
  Country: ES (occurrence: ES)
  Receive Date: 20171220
  Receipt Date: 20210717
  Transmission Date: 20211014
  Serious: Yes (Hospitalization, Other)
  Sender: FDA-Public Use
  Company Number: ES-AUROBINDO-AUR-APL-2017-45590

PATIENT
  Age: 78 Year
  Sex: Male

DRUGS (7)
  1. MEROPENEM 500 MG IV [Interacting]
     Active Substance: MEROPENEM
     Indication: URINARY TRACT INFECTION
  2. ERTAPENEM POWDER FOR CONCENTRATE FOR SOLUTION FOR INFUSION [Interacting]
     Active Substance: ERTAPENEM
     Indication: URINARY TRACT INFECTION
     Dosage: 1 GRAM, ONCE A DAY
     Route: 042
     Dates: start: 20170929, end: 20171002
  3. QUETIAPINE FILM?COATED TABLET [Suspect]
     Active Substance: QUETIAPINE
     Indication: PSYCHOMOTOR HYPERACTIVITY
     Dosage: 25 MILLIGRAM, ONCE A DAY
     Route: 048
     Dates: start: 20170928, end: 20171003
  4. MEROPENEM 500 MG IV [Interacting]
     Active Substance: MEROPENEM
     Indication: PYREXIA
     Dosage: 3 GRAM, ONCE A DAY
     Route: 042
     Dates: start: 20171002, end: 20171010
  5. ERTAPENEM POWDER FOR CONCENTRATE FOR SOLUTION FOR INFUSION [Interacting]
     Active Substance: ERTAPENEM
     Indication: URINARY TRACT INFECTION
  6. ERTAPENEM POWDER FOR CONCENTRATE FOR SOLUTION FOR INFUSION [Interacting]
     Active Substance: ERTAPENEM
     Indication: PYREXIA
     Dosage: 1 GRAM, ONCE A DAY
     Route: 065
  7. QUETIAPINE FILM?COATED TABLET [Interacting]
     Active Substance: QUETIAPINE
     Indication: AGITATION
     Dosage: UNK
     Route: 065

REACTIONS (3)
  - Off label use [Unknown]
  - Encephalopathy [Recovered/Resolved]
  - Product use in unapproved indication [Unknown]

NARRATIVE: CASE EVENT DATE: 20171002
